FAERS Safety Report 4604516-4 (Version None)
Quarter: 2005Q2

REPORT INFORMATION
  Report Type: 
  Country: None (occurrence: None)
  Receive Date: 20050223
  Receipt Date: 20041213
  Transmission Date: 20051028
  Serious: No
  Sender: FDA-Public Use
  Company Number: PHEH2004US13232

PATIENT
  Age: 43 Year
  Sex: Female

DRUGS (1)
  1. ZELNORM [Suspect]
     Indication: IRRITABLE BOWEL SYNDROME
     Dosage: MG, BID, ORAL
     Route: 048
     Dates: start: 20041208, end: 20041208

REACTIONS (3)
  - ERYTHEMA [None]
  - HYPERHIDROSIS [None]
  - URTICARIA [None]
